FAERS Safety Report 17412978 (Version 1)
Quarter: 2020Q1

REPORT INFORMATION
  Report Type: Spontaneous
  Country: US (occurrence: US)
  Receive Date: 20200213
  Receipt Date: 20200213
  Transmission Date: 20200409
  Serious: No
  Sender: FDA-Public Use
  Company Number: US-TEVA-2020-US-1183181

PATIENT
  Age: 12 Year
  Sex: Male

DRUGS (1)
  1. ATOMOXETINE. [Suspect]
     Active Substance: ATOMOXETINE HYDROCHLORIDE
     Route: 065

REACTIONS (1)
  - Decreased appetite [Unknown]
